FAERS Safety Report 8274438-9 (Version None)
Quarter: 2012Q2

REPORT INFORMATION
  Report Type: 
  Country: None (occurrence: None)
  Receive Date: 20120411
  Receipt Date: 20120404
  Transmission Date: 20120825
  Serious: Yes (Hospitalization, Other)
  Sender: FDA-Public Use
  Company Number: US-US-EMD SERONO, INC.-7104898

PATIENT
  Sex: Female

DRUGS (1)
  1. REBIF [Suspect]
     Indication: RELAPSING-REMITTING MULTIPLE SCLEROSIS
     Route: 058
     Dates: start: 20060628

REACTIONS (9)
  - BLADDER DISORDER [None]
  - ADVERSE DRUG REACTION [None]
  - COELIAC DISEASE [None]
  - FUNCTIONAL GASTROINTESTINAL DISORDER [None]
  - HYPOTHYROIDISM [None]
  - CHILLS [None]
  - INJECTION SITE HAEMATOMA [None]
  - BLOOD PRESSURE INCREASED [None]
  - PYREXIA [None]
